FAERS Safety Report 9411583 (Version 1)
Quarter: 2013Q3

REPORT INFORMATION
  Report Type: Spontaneous
  Country: US (occurrence: None)
  Receive Date: 20130718
  Receipt Date: 20130718
  Transmission Date: 20140515
  Serious: No
  Sender: FDA-Public Use
  Company Number: None

PATIENT
  Sex: Male
  Weight: 72.58 kg

DRUGS (2)
  1. PROPOXY N/APAP [Suspect]
     Dates: start: 1970
  2. DARVOCET N [Suspect]

REACTIONS (1)
  - No adverse event [None]
